FAERS Safety Report 6804639-5 (Version None)
Quarter: 2010Q2

REPORT INFORMATION
  Report Type: 
  Country: None (occurrence: None)
  Receive Date: 20100628
  Receipt Date: 20070419
  Transmission Date: 20101027
  Serious: No
  Sender: FDA-Public Use
  Company Number: US-PFIZER INC-2007032245

PATIENT
  Sex: Female
  Weight: 68.04 kg

DRUGS (3)
  1. GEODON [Suspect]
     Indication: SCHIZOAFFECTIVE DISORDER
     Dates: end: 20070101
  2. ZYPREXA [Suspect]
     Dates: start: 20070101, end: 20070101
  3. KLONOPIN [Concomitant]

REACTIONS (8)
  - ABDOMINAL PAIN UPPER [None]
  - BRUXISM [None]
  - CONVULSION [None]
  - DECREASED APPETITE [None]
  - INSOMNIA [None]
  - MUSCLE TWITCHING [None]
  - WEIGHT DECREASED [None]
  - WEIGHT INCREASED [None]
